FAERS Safety Report 6343301-2 (Version None)
Quarter: 2009Q3

REPORT INFORMATION
  Report Type: 
  Country: None (occurrence: None)
  Receive Date: 20090908
  Receipt Date: 20090828
  Transmission Date: 20100115
  Serious: Yes (Hospitalization)
  Sender: FDA-Public Use
  Company Number: PHHY2009JP06070

PATIENT
  Sex: Male

DRUGS (14)
  1. SIMULECT [Suspect]
     Indication: RENAL TRANSPLANT
     Dosage: 20 MG, ONCE/SINGLE
     Route: 042
     Dates: start: 20080423, end: 20080423
  2. SIMULECT [Suspect]
     Indication: IMMUNOSUPPRESSION
     Dosage: 20 MG, ONCE/SINGLE
     Route: 042
     Dates: start: 20080427, end: 20080427
  3. SIMULECT [Suspect]
     Indication: PROPHYLAXIS AGAINST TRANSPLANT REJECTION
  4. PROGRAF [Concomitant]
     Indication: IMMUNOSUPPRESSION
     Dosage: 10 MG, UNK
     Route: 048
     Dates: start: 20080413
  5. PROGRAF [Concomitant]
     Indication: PROPHYLAXIS AGAINST TRANSPLANT REJECTION
  6. CELLCEPT [Concomitant]
     Indication: IMMUNOSUPPRESSION
     Dosage: 1000 MG, UNK
     Route: 048
     Dates: start: 20080326
  7. CELLCEPT [Concomitant]
     Indication: PROPHYLAXIS AGAINST TRANSPLANT REJECTION
  8. PREDNISOLONE [Concomitant]
     Indication: IMMUNOSUPPRESSION
     Dosage: 10 MG, UNK
     Route: 048
     Dates: start: 20080413
  9. PREDNISOLONE [Concomitant]
     Indication: PROPHYLAXIS AGAINST TRANSPLANT REJECTION
  10. SOL-MELCORT [Concomitant]
     Indication: TRANSPLANT REJECTION
     Dosage: 250 MG, UNK
     Route: 042
     Dates: start: 20080423
  11. RITUXAN [Concomitant]
     Dosage: 200 MG, UNK
     Route: 042
     Dates: start: 20080409, end: 20080409
  12. PARIET [Concomitant]
     Indication: GASTRITIS PROPHYLAXIS
     Dosage: 10 MG, UNK
     Route: 048
     Dates: start: 20080413
  13. PROTECADIN [Concomitant]
     Indication: GASTRIC ULCER
     Dosage: 20 MG, UNK
     Route: 048
     Dates: start: 20080827
  14. DENOSINE [Concomitant]
     Dosage: 250 MG, UNK
     Route: 042
     Dates: start: 20080707

REACTIONS (3)
  - ABDOMINAL PAIN UPPER [None]
  - GASTRIC ULCER [None]
  - KIDNEY TRANSPLANT REJECTION [None]
